FAERS Safety Report 7549830-8 (Version None)
Quarter: 2011Q2

REPORT INFORMATION
  Report Type: 
  Country: None (occurrence: None)
  Receive Date: 20110615
  Receipt Date: 20110601
  Transmission Date: 20111010
  Serious: Yes (Hospitalization)
  Sender: FDA-Public Use
  Company Number: ES-ELI_LILLY_AND_COMPANY-ES201106004016

PATIENT
  Age: 70 Year
  Sex: Male
  Weight: 80 kg

DRUGS (4)
  1. DIPYRIDAMOLE [Concomitant]
     Dosage: UNK, UNKNOWN
     Route: 065
  2. CLOPIDOGREL [Concomitant]
     Dosage: UNK, UNKNOWN
     Route: 065
  3. ASPIRIN [Concomitant]
     Dosage: UNK, UNKNOWN
     Route: 065
  4. EFFIENT [Suspect]
     Indication: ANGIOPLASTY
     Dosage: 60 MG, (LOADING DOSE)
     Route: 048

REACTIONS (3)
  - INFARCTION [None]
  - DRUG DOSE OMISSION [None]
  - THROMBOSIS IN DEVICE [None]
